FAERS Safety Report 8862356 (Version 2)
Quarter: 2012Q4

REPORT INFORMATION
  Report Type: Report from Study
  Country: NL (occurrence: NL)
  Receive Date: 20121026
  Receipt Date: 20121106
  Transmission Date: 20130627
  Serious: Yes (Other)
  Sender: FDA-Public Use
  Company Number: NL-US-EMD SERONO, INC.-7159892

PATIENT
  Age: 34 Year
  Sex: Female
  Weight: 58 kg

DRUGS (5)
  1. REBIF [Suspect]
     Indication: RELAPSING-REMITTING MULTIPLE SCLEROSIS
     Route: 058
     Dates: start: 20110525, end: 20110608
  2. REBIF [Suspect]
     Route: 058
     Dates: start: 20110610, end: 20110624
  3. REBIF [Suspect]
     Route: 058
     Dates: start: 20110626, end: 20120511
  4. PARACETAMOL [Concomitant]
     Indication: PRODUCT USED FOR UNKNOWN INDICATION
     Route: 048
     Dates: start: 20110525, end: 20120512
  5. PARACETAMOL [Concomitant]
     Route: 048
     Dates: start: 20110526, end: 20120512

REACTIONS (3)
  - Foetal death [Recovered/Resolved with Sequelae]
  - Pregnancy [Recovered/Resolved]
  - Maternal exposure timing unspecified [Recovered/Resolved]
